FAERS Safety Report 8417026-3 (Version None)
Quarter: 2012Q2

REPORT INFORMATION
  Report Type: 
  Country: None (occurrence: None)
  Receive Date: 20120606
  Receipt Date: 20120523
  Transmission Date: 20120825
  Serious: Yes (Hospitalization)
  Sender: FDA-Public Use
  Company Number: JP-JNJFOC-20111203782

PATIENT
  Sex: Male

DRUGS (5)
  1. LAC-B [Concomitant]
     Route: 048
     Dates: start: 20110627, end: 20110629
  2. OXAROL [Concomitant]
     Route: 061
  3. USTEKINUMAB [Suspect]
     Indication: PSORIASIS
     Route: 058
     Dates: start: 20110627
  4. MYSER [Concomitant]
     Route: 061
  5. BETAMETHASONE [Concomitant]
     Route: 061

REACTIONS (1)
  - ENTERITIS INFECTIOUS [None]
